FAERS Safety Report 16589365 (Version 1)
Quarter: 2019Q3

REPORT INFORMATION
  Report Type: Spontaneous
  Country: FR (occurrence: FR)
  Receive Date: 20190718
  Receipt Date: 20190718
  Transmission Date: 20191004
  Serious: Yes (Hospitalization, Other)
  Sender: FDA-Public Use
  Company Number: FR-TEVA-2019-FR-1078492

PATIENT
  Age: 48 Year
  Sex: Female
  Weight: 55 kg

DRUGS (1)
  1. CISPLATINE [Suspect]
     Active Substance: CISPLATIN
     Indication: SQUAMOUS CELL CARCINOMA
     Route: 041
     Dates: start: 20121127, end: 20121127

REACTIONS (1)
  - Mucosal inflammation [Recovered/Resolved]

NARRATIVE: CASE EVENT DATE: 20121218
